FAERS Safety Report 5345242-6 (Version None)
Quarter: 2007Q2

REPORT INFORMATION
  Report Type: 
  Country: None (occurrence: None)
  Receive Date: 20070605
  Receipt Date: 20070524
  Transmission Date: 20071010
  Serious: Yes (Other)
  Sender: FDA-Public Use
  Company Number: PHEH2007US07880

PATIENT
  Age: 63 Year

DRUGS (7)
  1. ZELNORM [Suspect]
     Indication: IRRITABLE BOWEL SYNDROME
     Dates: start: 20020101, end: 20070301
  2. TRICOR [Concomitant]
  3. PROTONIX [Concomitant]
  4. LASIX [Concomitant]
  5. COREG [Concomitant]
  6. UNIVASC [Concomitant]
  7. ZETIA [Concomitant]

REACTIONS (3)
  - FATIGUE [None]
  - VASCULAR BYPASS GRAFT [None]
  - VASCULAR OCCLUSION [None]
